FAERS Safety Report 23201585 (Version 1)
Quarter: 2023Q4

REPORT INFORMATION
  Report Type: Spontaneous
  Country: GB (occurrence: GB)
  Receive Date: 20231118
  Receipt Date: 20231118
  Transmission Date: 20240109
  Serious: Yes (Other)
  Sender: FDA-Public Use
  Company Number: None

PATIENT
  Age: 29 Year
  Sex: Female
  Weight: 60 kg

DRUGS (11)
  1. HYDROCORTISONE [Suspect]
     Active Substance: HYDROCORTISONE
     Indication: Adverse drug reaction
     Dosage: 20 MILLIGRAM DAILY; 10MG TWICE A DAY (DOUBLE FOR SICK DAYS)
     Route: 065
     Dates: start: 20230911
  2. HYDROCORTISONE [Suspect]
     Active Substance: HYDROCORTISONE
     Indication: Adrenal insufficiency
  3. BRICANYL [Concomitant]
     Active Substance: TERBUTALINE SULFATE
     Indication: Asthma
  4. COCODAMOL [Concomitant]
     Active Substance: ACETAMINOPHEN\CODEINE PHOSPHATE
     Indication: Pain
  5. FEXOFENADINE [Concomitant]
     Active Substance: FEXOFENADINE HYDROCHLORIDE
     Indication: Hypersensitivity
  6. IBUPROFEN [Concomitant]
     Active Substance: IBUPROFEN
     Indication: Costochondritis
  7. IBUPROFEN [Concomitant]
     Active Substance: IBUPROFEN
     Indication: Neuralgia
  8. IBUPROFEN LYSINE [Concomitant]
     Active Substance: IBUPROFEN LYSINE
     Indication: Costochondritis
  9. VITAMINS NOS [Concomitant]
     Active Substance: VITAMINS
     Indication: Post-acute COVID-19 syndrome
     Dosage: IMMUNE SUPPORT VITAMINS
  10. RIBOFLAVIN [Concomitant]
     Active Substance: RIBOFLAVIN
     Indication: Post-acute COVID-19 syndrome
  11. SYMBICORT [Concomitant]
     Active Substance: BUDESONIDE\FORMOTEROL FUMARATE DIHYDRATE
     Indication: Asthma

REACTIONS (5)
  - Intermenstrual bleeding [Recovered/Resolved]
  - Intermenstrual bleeding [Recovered/Resolved]
  - Suicidal ideation [Recovering/Resolving]
  - Self-injurious ideation [Recovering/Resolving]
  - Polymenorrhoea [Not Recovered/Not Resolved]

NARRATIVE: CASE EVENT DATE: 20230922
